FAERS Safety Report 6342046-2 (Version None)
Quarter: 2009Q3

REPORT INFORMATION
  Report Type: 
  Country: None (occurrence: None)
  Receive Date: 20090903
  Receipt Date: 20090820
  Transmission Date: 20100115
  Serious: Yes (Hospitalization, Other)
  Sender: FDA-Public Use
  Company Number: ACO_00578_2009

PATIENT
  Age: 70 Year
  Sex: Male
  Weight: 65 kg

DRUGS (8)
  1. SIRDALUD /00740702/ (SIRDALUD - TIZANIDINE HYDROCHLORIDE) (NOT SPECIFI [Suspect]
     Indication: MUSCLE SPASMS
     Dosage: (4 MG TID ORAL), (4 MG BID ORAL), (4 MG QD ORAL)
     Route: 048
     Dates: start: 20060201, end: 20090426
  2. SIRDALUD /00740702/ (SIRDALUD - TIZANIDINE HYDROCHLORIDE) (NOT SPECIFI [Suspect]
     Indication: MUSCLE SPASMS
     Dosage: (4 MG TID ORAL), (4 MG BID ORAL), (4 MG QD ORAL)
     Route: 048
     Dates: start: 20090427, end: 20090505
  3. SIRDALUD /00740702/ (SIRDALUD - TIZANIDINE HYDROCHLORIDE) (NOT SPECIFI [Suspect]
     Indication: MUSCLE SPASMS
     Dosage: (4 MG TID ORAL), (4 MG BID ORAL), (4 MG QD ORAL)
     Route: 048
     Dates: start: 20090506, end: 20090509
  4. ASPIRIN [Concomitant]
  5. DYSPORT /01136801/ [Concomitant]
  6. OMEPRAZOLE [Concomitant]
  7. PENTOXIFYLLINE [Concomitant]
  8. ZOCOR [Concomitant]

REACTIONS (9)
  - ATRIOVENTRICULAR BLOCK FIRST DEGREE [None]
  - BLOOD PRESSURE DECREASED [None]
  - CHILLS [None]
  - COLD SWEAT [None]
  - HEART RATE DECREASED [None]
  - SUPRAVENTRICULAR EXTRASYSTOLES [None]
  - SYNCOPE [None]
  - VASCULAR TEST ABNORMAL [None]
  - VENTRICULAR EXTRASYSTOLES [None]
